FAERS Safety Report 12757796 (Version 2)
Quarter: 2016Q3

REPORT INFORMATION
  Report Type: Spontaneous
  Country: BR (occurrence: BR)
  Receive Date: 20160919
  Receipt Date: 20160923
  Transmission Date: 20161109
  Serious: Yes (Hospitalization, Other)
  Sender: FDA-Public Use
  Company Number: BR-ROCHE-1830315

PATIENT
  Age: 53 Year

DRUGS (5)
  1. BESEROL [Concomitant]
  2. ZELBORAF [Suspect]
     Active Substance: VEMURAFENIB
     Indication: MALIGNANT MELANOMA
     Route: 065
     Dates: start: 20160712
  3. KETOPROFEN. [Concomitant]
     Active Substance: KETOPROFEN
  4. PROCTYL (BRAZIL) [Concomitant]
  5. OMEPRAZOLE. [Concomitant]
     Active Substance: OMEPRAZOLE

REACTIONS (7)
  - Discomfort [Recovering/Resolving]
  - Rash maculo-papular [Recovering/Resolving]
  - Myalgia [Recovering/Resolving]
  - Inflammation [Recovering/Resolving]
  - Arthralgia [Recovering/Resolving]
  - Conjunctival hyperaemia [Recovering/Resolving]
  - Pyrexia [Recovering/Resolving]

NARRATIVE: CASE EVENT DATE: 20160715
